FAERS Safety Report 8000793-0 (Version None)
Quarter: 2011Q4

REPORT INFORMATION
  Report Type: 
  Country: None (occurrence: None)
  Receive Date: 20111222
  Receipt Date: 20111220
  Transmission Date: 20120403
  Serious: No
  Sender: FDA-Public Use
  Company Number: US-BAYER-2011-122480

PATIENT
  Age: 37 Year
  Sex: Female
  Weight: 154 kg

DRUGS (4)
  1. VITAMIN B12 [Concomitant]
     Dosage: 2 DF, Q1MON
  2. CELEXA [Concomitant]
     Dosage: 40 MG, UNK
  3. ALEVE (CAPLET) [Suspect]
     Indication: BACK PAIN
     Dosage: 2 DF, ONCE
     Route: 048
     Dates: start: 20111212, end: 20111212
  4. MULTI-VITAMINS [Concomitant]

REACTIONS (2)
  - ABDOMINAL DISCOMFORT [None]
  - BACK PAIN [None]
